FAERS Safety Report 15813339 (Version 2)
Quarter: 2019Q1

REPORT INFORMATION
  Report Type: Report from Study
  Country: US (occurrence: US)
  Receive Date: 20190111
  Receipt Date: 20190301
  Transmission Date: 20190417
  Serious: Yes (Death)
  Sender: FDA-Public Use
  Company Number: US-ASTRAZENECA-2019SE05803

PATIENT
  Sex: Male
  Weight: 3.9 kg

DRUGS (12)
  1. BUDESONIDE. [Suspect]
     Active Substance: BUDESONIDE
     Dosage: UNKNOWN
     Route: 055
  2. DIGOXIN. [Concomitant]
     Active Substance: DIGOXIN
     Route: 048
  3. CLONIDINE. [Concomitant]
     Active Substance: CLONIDINE
     Route: 048
  4. SIMETHICONE (DIMETHICONE) [Concomitant]
     Active Substance: DIMETHICONE
     Route: 048
  5. SPIRONOLACTONE. [Concomitant]
     Active Substance: SPIRONOLACTONE
     Route: 048
  6. OMEPRAZOLE. [Suspect]
     Active Substance: OMEPRAZOLE
     Route: 048
  7. FUROSEMIDE. [Concomitant]
     Active Substance: FUROSEMIDE
     Route: 048
  8. LIDOCAINE. [Concomitant]
     Active Substance: LIDOCAINE
     Dosage: 2% OINTMENT
     Route: 050
  9. PULMOZYME [Concomitant]
     Active Substance: DORNASE ALFA
     Route: 048
  10. ALBUTEROL NEBULIZER [Concomitant]
     Active Substance: ALBUTEROL
     Route: 055
  11. DIURIL [Concomitant]
     Active Substance: CHLOROTHIAZIDE
     Route: 048
  12. SYNAGIS [Suspect]
     Active Substance: PALIVIZUMAB
     Indication: PROPHYLAXIS
     Route: 030
     Dates: start: 20181203

REACTIONS (1)
  - Death [Fatal]
